FAERS Safety Report 7524513-9 (Version None)
Quarter: 2011Q2

REPORT INFORMATION
  Report Type: 
  Country: None (occurrence: None)
  Receive Date: 20110606
  Receipt Date: 20101227
  Transmission Date: 20111010
  Serious: Yes (Hospitalization)
  Sender: FDA-Public Use
  Company Number: US-BAYER-201011508NA

PATIENT
  Age: 28 Year
  Sex: Female
  Weight: 99.2 kg

DRUGS (14)
  1. YAZ [Suspect]
     Indication: ACNE
     Dosage: UNK UNK, QD
     Route: 048
     Dates: start: 20070801, end: 20080101
  2. FLUTICASONE PROPIONATE [Concomitant]
  3. MIGRANAL [Concomitant]
     Indication: MIGRAINE
     Route: 045
     Dates: start: 20040801, end: 20081201
  4. ADVIL [Concomitant]
  5. ACETAMINOPHEN AND HYDROCODONE BITARTRATE [Concomitant]
     Dosage: UNK
     Dates: start: 20071227
  6. NEXIUM [Concomitant]
     Indication: GASTROOESOPHAGEAL REFLUX DISEASE
     Dates: start: 20050901, end: 20080801
  7. CEFDINIR [Concomitant]
     Dosage: UNK
     Dates: start: 20071126
  8. NEXIUM [Concomitant]
     Dosage: UNK
     Route: 048
     Dates: start: 20071101
  9. CEFDINIR [Concomitant]
     Dosage: UNK
     Route: 048
     Dates: start: 20070818
  10. NAPROXEN [Concomitant]
     Dosage: UNK
     Route: 048
     Dates: start: 20071003
  11. YAZ [Suspect]
     Indication: MENORRHAGIA
  12. TYLENOL (CAPLET) [Concomitant]
     Indication: PAIN MANAGEMENT
  13. MOTRIN [Concomitant]
  14. AMOXICILLIN [Concomitant]
     Dosage: UNK
     Route: 048
     Dates: start: 20071101

REACTIONS (4)
  - DEEP VEIN THROMBOSIS [None]
  - PULMONARY EMBOLISM [None]
  - DYSPNOEA [None]
  - CHEST PAIN [None]
